FAERS Safety Report 8774112 (Version 1)
Quarter: 2012Q4

REPORT INFORMATION
  Report Type: 
  Country: US (occurrence: US)
  Receive Date: 20120907
  Receipt Date: 20120907
  Transmission Date: 20130627
  Serious: Yes (Other)
  Sender: FDA-Public Use
  Company Number: US-JNJFOC-20120813091

PATIENT
  Age: 40 None
  Sex: Male
  Weight: 113.4 kg

DRUGS (3)
  1. DURAGESIC [Suspect]
     Indication: PAIN
     Route: 062
     Dates: start: 2005, end: 2007
  2. DURAGESIC [Suspect]
     Indication: PAIN
     Route: 062
     Dates: start: 20120825
  3. DURAGESIC [Suspect]
     Indication: PAIN
     Route: 062
     Dates: start: 20120824

REACTIONS (4)
  - Umbilical hernia [Unknown]
  - Infection [Recovered/Resolved]
  - Weight decreased [Recovering/Resolving]
  - Product quality issue [Unknown]
